FAERS Safety Report 20985146 (Version 1)
Quarter: 2022Q2

REPORT INFORMATION
  Report Type: Spontaneous
  Country: US (occurrence: None)
  Receive Date: 20220621
  Receipt Date: 20220621
  Transmission Date: 20220721
  Serious: No
  Sender: FDA-Public Use
  Company Number: US-ROCHE-2992495

PATIENT
  Sex: Female
  Weight: 47.670 kg

DRUGS (5)
  1. XELODA [Suspect]
     Active Substance: CAPECITABINE
     Indication: Product used for unknown indication
     Route: 065
  2. TREPROSTINIL SODIUM [Suspect]
     Active Substance: TREPROSTINIL SODIUM
     Indication: Pulmonary arterial hypertension
     Dosage: 5 MG/ML
     Route: 058
     Dates: start: 20140714
  3. ADCIRCA [Concomitant]
     Active Substance: TADALAFIL
  4. OPSUMIT [Concomitant]
     Active Substance: MACITENTAN
  5. ADEMPAS [Concomitant]
     Active Substance: RIOCIGUAT

REACTIONS (6)
  - Abdominal discomfort [Unknown]
  - Dizziness [Unknown]
  - Swelling [Unknown]
  - Unevaluable event [Unknown]
  - Hypoaesthesia [Unknown]
  - Paraesthesia [Unknown]
